FAERS Safety Report 15755922 (Version 3)
Quarter: 2019Q4

REPORT INFORMATION
  Report Type: Report from Study
  Country: US (occurrence: US)
  Receive Date: 20181224
  Receipt Date: 20191118
  Transmission Date: 20200122
  Serious: Yes (Other)
  Sender: FDA-Public Use
  Company Number: PHEH2018US053953

PATIENT
  Sex: Male

DRUGS (2)
  1. ILARIS [Suspect]
     Active Substance: CANAKINUMAB
     Indication: CRYOPYRIN ASSOCIATED PERIODIC SYNDROME
     Dosage: 150 MG, Q5W
     Route: 058
  2. ILARIS [Suspect]
     Active Substance: CANAKINUMAB
     Indication: URTICARIA
     Dosage: 150 MG (EVERY 8 WEEKS)
     Route: 058
     Dates: start: 20170726

REACTIONS (3)
  - Viral infection [Unknown]
  - Chest pain [Unknown]
  - Inappropriate schedule of product administration [Unknown]
